FAERS Safety Report 7105920-5 (Version None)
Quarter: 2010Q4

REPORT INFORMATION
  Report Type: 
  Country: None (occurrence: None)
  Receive Date: 20101116
  Receipt Date: 20101109
  Transmission Date: 20110411
  Serious: Yes (Hospitalization)
  Sender: FDA-Public Use
  Company Number: B0684537A

PATIENT
  Sex: Female
  Weight: 60 kg

DRUGS (3)
  1. LAPATINIB [Suspect]
     Indication: GLIOMA
     Dosage: 1000MG PER DAY
     Route: 042
     Dates: start: 20100401, end: 20100525
  2. TEMODAL [Suspect]
     Indication: GLIOMA
     Dosage: 200MG PER DAY
     Route: 042
     Dates: start: 20100401, end: 20100510
  3. KEPPRA [Concomitant]
     Indication: EPILEPSY
     Dosage: 500MG PER DAY
     Dates: start: 20091124

REACTIONS (4)
  - ANAEMIA [None]
  - FEBRILE NEUTROPENIA [None]
  - PLATELET DISORDER [None]
  - WHITE BLOOD CELL COUNT ABNORMAL [None]
